FAERS Safety Report 24114049 (Version 3)
Quarter: 2024Q3

REPORT INFORMATION
  Report Type: Report from Study
  Country: US (occurrence: US)
  Receive Date: 20240720
  Receipt Date: 20240902
  Transmission Date: 20241017
  Serious: Yes (Other)
  Sender: ABBVIE
  Company Number: US-ABBVIE-5602197

PATIENT
  Sex: Female
  Weight: 76.657 kg

DRUGS (1)
  1. SKYRIZI [Suspect]
     Active Substance: RISANKIZUMAB-RZAA
     Indication: Psoriasis
     Route: 058
     Dates: start: 20221004

REACTIONS (5)
  - Osteoarthritis [Recovering/Resolving]
  - Procedural pain [Unknown]
  - Skin disorder [Not Recovered/Not Resolved]
  - Hip arthroplasty [Recovering/Resolving]
  - Spinal osteoarthritis [Unknown]

NARRATIVE: CASE EVENT DATE: 20240101
